FAERS Safety Report 9123655 (Version 1)
Quarter: 2013Q1

REPORT INFORMATION
  Report Type: Spontaneous
  Country: BR (occurrence: BR)
  Receive Date: 20130114
  Receipt Date: 20130114
  Transmission Date: 20140127
  Serious: Yes (Other)
  Sender: FDA-Public Use
  Company Number: BR-SANOFI-AVENTIS-2012SA050716

PATIENT
  Sex: Female
  Weight: 103 kg

DRUGS (2)
  1. CLEXANE [Suspect]
     Indication: HYPERCOAGULATION
     Route: 065
     Dates: start: 201205
  2. ACETYLSALICYLIC ACID [Concomitant]
     Route: 065
     Dates: end: 20121220

REACTIONS (2)
  - Caesarean section [Unknown]
  - Exposure during pregnancy [Unknown]
